FAERS Safety Report 6360383-2 (Version None)
Quarter: 2009Q3

REPORT INFORMATION
  Report Type: 
  Country: None (occurrence: None)
  Receive Date: 20090917
  Receipt Date: 20090915
  Transmission Date: 20100115
  Serious: Yes (Life-Threatening)
  Sender: FDA-Public Use
  Company Number: JP-EISAI INC.-E2020-05095-SPO-JP

PATIENT
  Sex: Female
  Weight: 39 kg

DRUGS (11)
  1. ARICEPT [Suspect]
     Indication: DEMENTIA ALZHEIMER'S TYPE
     Route: 048
     Dates: start: 20060101, end: 20090820
  2. MAGMITT [Concomitant]
     Route: 048
  3. VASOLAN [Concomitant]
     Route: 048
  4. TRICOR [Concomitant]
     Route: 048
  5. PANTOSIN [Concomitant]
     Route: 048
  6. PURSENNID [Concomitant]
     Indication: CONSTIPATION
     Route: 048
  7. DIGOSIN [Concomitant]
     Route: 048
  8. WARFARIN [Concomitant]
     Indication: ATRIAL FIBRILLATION
     Route: 048
  9. LIPIDIL [Concomitant]
     Route: 048
  10. MAGLAX [Concomitant]
     Indication: CONSTIPATION
     Route: 048
  11. BENZALIN [Concomitant]
     Indication: INSOMNIA
     Route: 048

REACTIONS (1)
  - VENTRICULAR FIBRILLATION [None]
